FAERS Safety Report 15041319 (Version 2)
Quarter: 2019Q3

REPORT INFORMATION
  Report Type: Spontaneous
  Country: US (occurrence: US)
  Receive Date: 20180621
  Receipt Date: 20190814
  Transmission Date: 20191004
  Serious: Yes (Hospitalization, Other)
  Sender: FDA-Public Use
  Company Number: US-ZYDUS-020582

PATIENT
  Age: 79 Year
  Sex: Female

DRUGS (3)
  1. METHOTREXATE. [Suspect]
     Active Substance: METHOTREXATE
     Indication: RHEUMATOID ARTHRITIS
     Route: 065
  2. PREDNISONE. [Concomitant]
     Active Substance: PREDNISONE
     Indication: RHEUMATOID ARTHRITIS
     Route: 065
  3. HYDROXYCHLOROQUINE [Concomitant]
     Active Substance: HYDROXYCHLOROQUINE
     Indication: RHEUMATOID ARTHRITIS
     Route: 065

REACTIONS (16)
  - Chest discomfort [Recovering/Resolving]
  - Crepitations [Recovering/Resolving]
  - Palpitations [Recovering/Resolving]
  - Pulmonary hypertension [Recovering/Resolving]
  - Dyspnoea [Recovering/Resolving]
  - Tachycardia [Recovering/Resolving]
  - Tachypnoea [Recovering/Resolving]
  - Pulmonary fibrosis [Recovering/Resolving]
  - Pneumothorax [Recovering/Resolving]
  - Leukocytosis [Recovering/Resolving]
  - Emphysema [Recovering/Resolving]
  - Bronchopleural fistula [Recovering/Resolving]
  - Breath sounds abnormal [Recovering/Resolving]
  - Respiratory failure [Recovering/Resolving]
  - Pleural fibrosis [Recovering/Resolving]
  - Oxygen saturation decreased [Recovering/Resolving]
